FAERS Safety Report 15567267 (Version 2)
Quarter: 2018Q4

REPORT INFORMATION
  Report Type: Spontaneous
  Country: ID (occurrence: ID)
  Receive Date: 20181030
  Receipt Date: 20181211
  Transmission Date: 20190205
  Serious: Yes (Hospitalization)
  Sender: FDA-Public Use
  Company Number: ID-BAYER-2018-200616

PATIENT
  Age: 60 Year
  Sex: Male

DRUGS (1)
  1. ULTRAVIST [Suspect]
     Active Substance: IOPROMIDE
     Indication: UROGRAM
     Dosage: UNK, ONCE
     Route: 041
     Dates: start: 20181026, end: 20181026

REACTIONS (9)
  - Blood pressure decreased [Not Recovered/Not Resolved]
  - Asthenia [Not Recovered/Not Resolved]
  - Loss of consciousness [Not Recovered/Not Resolved]
  - Pruritus [Not Recovered/Not Resolved]
  - Nausea [Not Recovered/Not Resolved]
  - Pulse absent [Not Recovered/Not Resolved]
  - Vomiting [Not Recovered/Not Resolved]
  - Visual field defect [Not Recovered/Not Resolved]
  - Anaphylactic shock [Not Recovered/Not Resolved]

NARRATIVE: CASE EVENT DATE: 20181026
